FAERS Safety Report 8009303-5 (Version None)
Quarter: 2011Q4

REPORT INFORMATION
  Report Type: 
  Country: None (occurrence: None)
  Receive Date: 20111227
  Receipt Date: 20111219
  Transmission Date: 20120403
  Serious: Yes (Hospitalization)
  Sender: FDA-Public Use
  Company Number: IL-SANOFI-AVENTIS-2011SA083763

PATIENT
  Age: 56 Year
  Sex: Male
  Weight: 95.8 kg

DRUGS (7)
  1. DOCETAXEL [Suspect]
     Route: 042
     Dates: start: 20111024, end: 20111024
  2. BLINDED THERAPY [Suspect]
     Route: 042
     Dates: start: 20110725, end: 20110725
  3. ENALAPRIL MALEATE [Concomitant]
     Dates: start: 20020101
  4. DOCETAXEL [Suspect]
     Route: 042
     Dates: start: 20110725, end: 20110725
  5. DEXAMETHASONE [Concomitant]
     Dates: start: 20111114, end: 20111119
  6. BLINDED THERAPY [Suspect]
     Route: 042
     Dates: start: 20111024, end: 20111024
  7. SODIUM CHLORIDE [Concomitant]
     Dates: start: 20111114, end: 20111114

REACTIONS (3)
  - PYREXIA [None]
  - LEUKOCYTOSIS [None]
  - ABSCESS [None]
